FAERS Safety Report 9283300 (Version 1)
Quarter: 2013Q2

REPORT INFORMATION
  Report Type: Spontaneous
  Country: US (occurrence: US)
  Receive Date: 20130510
  Receipt Date: 20130510
  Transmission Date: 20140414
  Serious: No
  Sender: FDA-Public Use
  Company Number: US-GLAXOSMITHKLINE-A0995473A

PATIENT
  Sex: Female
  Weight: 68.2 kg

DRUGS (16)
  1. TYKERB [Suspect]
     Indication: PRODUCT USED FOR UNKNOWN INDICATION
     Dosage: 250MG SEE DOSAGE TEXT
     Route: 048
  2. LISINOPRIL [Concomitant]
  3. OMEPRAZOLE [Concomitant]
  4. ZOFRAN [Concomitant]
  5. HOMATROPINE [Concomitant]
  6. HYDROCODONE [Concomitant]
  7. IBUPROFEN [Concomitant]
  8. HYDROCHLOROTHIAZIDE + TRIAMTERENE [Concomitant]
  9. COLACE [Concomitant]
  10. EMLA [Concomitant]
  11. MUCINEX [Concomitant]
  12. KLOR-CON M [Concomitant]
  13. FERGON [Concomitant]
  14. VITAMIN C + E [Concomitant]
  15. CALCIUM + D [Concomitant]
  16. CENTRUM SILVER [Concomitant]

REACTIONS (1)
  - Dry skin [Unknown]
